FAERS Safety Report 4636711-2 (Version None)
Quarter: 2005Q2

REPORT INFORMATION
  Report Type: 
  Country: None (occurrence: None)
  Receive Date: 20050414
  Receipt Date: 20050401
  Transmission Date: 20051028
  Serious: Yes (Other)
  Sender: FDA-Public Use
  Company Number: 2005054293

PATIENT
  Age: 75 Year
  Sex: Male
  Weight: 97.5234 kg

DRUGS (6)
  1. GABAPENTIN [Suspect]
     Indication: BACK PAIN
     Dosage: 600 MG (300 MG, 1 D), ORAL
     Route: 048
     Dates: start: 20050301, end: 20050402
  2. GABAPENTIN [Suspect]
     Indication: BACK PAIN
     Dosage: (300 MG), ORAL
     Route: 048
     Dates: start: 20050301, end: 20050402
  3. VALSARTAN [Concomitant]
  4. AMLODIPINE/ATORVASTATIN (AMLODIPINE, ATORVASTATIN) [Concomitant]
  5. CARVEDILOL [Concomitant]
  6. ASPIRIN [Concomitant]

REACTIONS (2)
  - BLOOD PRESSURE DIASTOLIC DECREASED [None]
  - DRUG EFFECT DECREASED [None]
